FAERS Safety Report 7910048-8 (Version None)
Quarter: 2011Q4

REPORT INFORMATION
  Report Type: 
  Country: None (occurrence: None)
  Receive Date: 20111111
  Receipt Date: 20111026
  Transmission Date: 20120403
  Serious: Yes (Other)
  Sender: FDA-Public Use
  Company Number: US-ROCHE-760768

PATIENT
  Sex: Male
  Weight: 108.9 kg

DRUGS (12)
  1. ACCUTANE [Suspect]
     Route: 065
     Dates: start: 19980112, end: 19980301
  2. ASPIRIN [Concomitant]
     Indication: PAIN
  3. ACETAMINOPHEN [Concomitant]
     Indication: NASOPHARYNGITIS
  4. MINOCYCLINE HCL [Concomitant]
  5. ACCUTANE [Suspect]
     Route: 065
     Dates: start: 19960913, end: 19961101
  6. SOTRET [Suspect]
     Indication: ACNE
     Route: 048
  7. SULFACET-R [Concomitant]
  8. NYQUIL [Concomitant]
     Indication: NASOPHARYNGITIS
  9. CEPHALEXIN [Concomitant]
     Indication: ACNE
  10. ACCUTANE [Suspect]
     Route: 065
  11. AMNESTEEM [Suspect]
     Indication: ACNE
     Route: 065
  12. ACCUTANE [Suspect]
     Indication: ACNE
     Route: 065
     Dates: start: 19930210, end: 19940101

REACTIONS (6)
  - INFLAMMATORY BOWEL DISEASE [None]
  - BLOOD TRIGLYCERIDES INCREASED [None]
  - COLITIS ULCERATIVE [None]
  - RECTAL ABSCESS [None]
  - DEPRESSION [None]
  - BLOOD CHOLESTEROL INCREASED [None]
